FAERS Safety Report 10028132 (Version 1)
Quarter: 2014Q1

REPORT INFORMATION
  Report Type: Spontaneous
  Country: US (occurrence: None)
  Receive Date: 20140306
  Receipt Date: 20140306
  Transmission Date: 20141002
  Serious: Yes (Other)
  Sender: FDA-Public Use
  Company Number: 54973 AE # 1527

PATIENT
  Sex: Male

DRUGS (4)
  1. HYLAND^S LEG CRAMPS [Suspect]
     Indication: BODY TEMPERATURE INCREASED
     Dosage: DISSOLVE 2-3 TABS
     Route: 060
  2. HYLAND^S LEG CRAMPS [Suspect]
     Indication: PAIN
     Dosage: DISSOLVE 2-3 TABS
     Route: 060
  3. HYLAND^S LEG CRAMPS [Suspect]
     Indication: BODY TEMPERATURE INCREASED
     Dosage: APPLY LIBERALLY TO AREA
  4. HYLAND^S LEG CRAMPS [Suspect]
     Indication: PAIN
     Dosage: APPLY LIBERALLY TO AREA

REACTIONS (1)
  - Feeling abnormal [None]
